FAERS Safety Report 5738721-0 (Version None)
Quarter: 2008Q2

REPORT INFORMATION
  Report Type: 
  Country: None (occurrence: None)
  Receive Date: 20080515
  Receipt Date: 20080508
  Transmission Date: 20081010
  Serious: Yes (Other)
  Sender: FDA-Public Use
  Company Number: PHHY2008BR07734

PATIENT
  Sex: Female
  Weight: 100 kg

DRUGS (8)
  1. HYDERGINE [Suspect]
     Dosage: 1 TAB/MORNING
     Route: 048
     Dates: end: 20080201
  2. PROPRANOLOL [Concomitant]
     Dosage: 2 TABS/DAY
     Route: 048
  3. SUSTRATE [Concomitant]
     Dosage: 2 TABS/DAY
     Route: 048
  4. DACARBAZINE [Concomitant]
     Indication: DEPRESSION
     Dosage: 2 TABS/MORNING
     Route: 048
  5. OXYBUTYNIN CHLORIDE [Concomitant]
     Indication: URINARY INCONTINENCE
     Dosage: 1 TAB/DAY
     Route: 048
     Dates: start: 20071101
  6. ASPIRIN [Concomitant]
     Indication: ANTICOAGULANT THERAPY
     Dosage: 2 TABS/DAY
     Route: 048
  7. CRESTOR [Concomitant]
     Indication: BLOOD CHOLESTEROL
     Dosage: 1 TAB/DAY
     Route: 048
     Dates: start: 20080201
  8. OLCADIL [Concomitant]
     Dosage: 1 TAB/NIGHT
     Route: 048

REACTIONS (5)
  - ABNORMAL BEHAVIOUR [None]
  - CONFUSIONAL STATE [None]
  - DEMENTIA ALZHEIMER'S TYPE [None]
  - MYOCARDIAL INFARCTION [None]
  - SURGERY [None]
